FAERS Safety Report 12201396 (Version 1)
Quarter: 2016Q1

REPORT INFORMATION
  Report Type: Spontaneous
  Country: US (occurrence: US)
  Receive Date: 20160322
  Receipt Date: 20160322
  Transmission Date: 20160526
  Serious: No
  Sender: FDA-Public Use
  Company Number: US-SA-2015SA028666

PATIENT
  Age: 56 Year
  Sex: Female

DRUGS (1)
  1. NASACORT ALLERGY 24HR [Suspect]
     Active Substance: TRIAMCINOLONE ACETONIDE
     Indication: SINUSITIS
     Dosage: TAKEN FROM: 2 DAYS AGO?DOSAGE/FREQUENCY: 35 MCG 2 PUFFS AT NIGHT
     Route: 065

REACTIONS (2)
  - Insomnia [Unknown]
  - Anxiety [Unknown]
